FAERS Safety Report 18508332 (Version 2)
Quarter: 2020Q4

REPORT INFORMATION
  Report Type: Spontaneous
  Country: US (occurrence: US)
  Receive Date: 20201116
  Receipt Date: 20201210
  Transmission Date: 20210114
  Serious: Yes (Hospitalization, Other)
  Sender: FDA-Public Use
  Company Number: US-AMNEAL PHARMACEUTICALS-2020-AMRX-03525

PATIENT
  Age: 6 Year
  Sex: Male

DRUGS (3)
  1. VIGABATRIN. [Suspect]
     Active Substance: VIGABATRIN
     Dosage: 900 MILLIGRAM, 2 /DAY (2 PACKETS IN 20 ML OF WATER AND TAKE 18ML FOR ONE WEEK)
     Route: 048
  2. VIGABATRIN. [Suspect]
     Active Substance: VIGABATRIN
     Indication: EPILEPSY
     Dosage: 800 MILLIGRAM, 2 /DAY (2 PACKETS IN 20 ML OF WATER AND TAKE 16 ML FOR ONE WEEK)
     Route: 048
     Dates: start: 201806
  3. VIGABATRIN. [Suspect]
     Active Substance: VIGABATRIN
     Dosage: 1000 MILLIGRAM, 2 /DAY (2 PACKETS IN 20 ML OF WATER AND TAKE 20ML FOR ONE WEEK)
     Route: 048

REACTIONS (3)
  - Nasal congestion [Recovered/Resolved]
  - Respiratory distress [Recovering/Resolving]
  - Nasopharyngitis [Recovered/Resolved]

NARRATIVE: CASE EVENT DATE: 20201023
